FAERS Safety Report 8787302 (Version 1)
Quarter: 2012Q4

REPORT INFORMATION
  Report Type: Report from Study
  Country: US (occurrence: US)
  Receive Date: 20120914
  Receipt Date: 20120914
  Transmission Date: 20130627
  Serious: No
  Sender: FDA-Public Use
  Company Number: US-VERTEX PHARMACEUTICAL INC.-AE-2012-009842

PATIENT
  Sex: Male
  Weight: 81.6 kg

DRUGS (4)
  1. INCIVEK [Suspect]
     Indication: HEPATITIS C
     Route: 048
     Dates: start: 2011
  2. PEGASYS [Concomitant]
     Indication: HEPATITIS C
     Route: 058
     Dates: start: 2011, end: 20120709
  3. RIBASPHERE [Concomitant]
     Indication: HEPATITIS C
     Route: 048
     Dates: start: 2011, end: 20120709
  4. SONATA [Concomitant]

REACTIONS (6)
  - Visual impairment [Unknown]
  - Epistaxis [Unknown]
  - Increased upper airway secretion [Unknown]
  - Cough [Unknown]
  - Skin discolouration [Unknown]
  - Rash pruritic [Unknown]
